FAERS Safety Report 9330739 (Version 1)
Quarter: 2013Q2

REPORT INFORMATION
  Report Type: Spontaneous
  Country: BE (occurrence: BE)
  Receive Date: 20130605
  Receipt Date: 20130605
  Transmission Date: 20140414
  Serious: Yes (Other)
  Sender: FDA-Public Use
  Company Number: BE-009507513-1305BEL017619

PATIENT
  Age: 75 Year
  Sex: Female

DRUGS (7)
  1. FOSAMAX [Suspect]
     Dosage: UNK
     Route: 048
     Dates: start: 200806, end: 2008
  2. FOSAVANCE [Suspect]
     Dosage: UNK
     Route: 048
     Dates: start: 2008, end: 201011
  3. COZAAR 100MG [Concomitant]
     Route: 048
  4. BISOPROLOL [Concomitant]
  5. EVISTA [Concomitant]
  6. ADALAT [Concomitant]
  7. ALDACTONE TABLETS [Concomitant]

REACTIONS (1)
  - Osteonecrosis [Not Recovered/Not Resolved]
